FAERS Safety Report 15318746 (Version 1)
Quarter: 2018Q3

REPORT INFORMATION
  Report Type: Spontaneous
  Country: US (occurrence: US)
  Receive Date: 20180818
  Receipt Date: 20180818
  Transmission Date: 20181010
  Serious: Yes (Life-Threatening, Hospitalization)
  Sender: FDA-Public Use
  Company Number: None

PATIENT
  Age: 56 Year
  Sex: Male
  Weight: 71.1 kg

DRUGS (13)
  1. RANITIDINE. [Concomitant]
     Active Substance: RANITIDINE
  2. SAW PALMETTO [Concomitant]
     Active Substance: HERBALS\SAW PALMETTO
  3. LIV.52 [Concomitant]
  4. MILK THISTLE [Concomitant]
     Active Substance: DIETARY SUPPLEMENT\HERBALS\MILK THISTLE
  5. ASPIRIN. [Concomitant]
     Active Substance: ASPIRIN
  6. ISOSORBIDE. [Concomitant]
     Active Substance: ISOSORBIDE
  7. CHOLEST?OFF [Concomitant]
     Active Substance: DIETARY SUPPLEMENT
  8. AMLODIPINE BESYLATE. [Suspect]
     Active Substance: AMLODIPINE BESYLATE
     Indication: ANGINA PECTORIS
     Dosage: ?          QUANTITY:1 CAPSULE(S);?
     Route: 048
     Dates: start: 20180814, end: 20180818
  9. LISINOPRIL. [Concomitant]
     Active Substance: LISINOPRIL
  10. ZETIA [Concomitant]
     Active Substance: EZETIMIBE
  11. COQ10 [Concomitant]
     Active Substance: UBIDECARENONE
  12. PLAVIX [Concomitant]
     Active Substance: CLOPIDOGREL BISULFATE
  13. PILOCARPINE. [Concomitant]
     Active Substance: PILOCARPINE

REACTIONS (6)
  - Chest pain [None]
  - Nausea [None]
  - Headache [None]
  - Apparent death [None]
  - Presyncope [None]
  - Cold sweat [None]

NARRATIVE: CASE EVENT DATE: 20180817
